FAERS Safety Report 8874839 (Version 1)
Quarter: 2012Q4

REPORT INFORMATION
  Report Type: 
  Country: US (occurrence: US)
  Receive Date: 20121023
  Receipt Date: 20121023
  Transmission Date: 20130627
  Serious: No
  Sender: FDA-Public Use
  Company Number: US-PFIZER INC-2012263771

PATIENT

DRUGS (2)
  1. SERTRALINE HCL [Suspect]
     Dosage: UNK
  2. FLUOXETINE HYDROCHLORIDE [Suspect]

REACTIONS (2)
  - Dyspnoea [Unknown]
  - Drug withdrawal syndrome [Unknown]
